FAERS Safety Report 7917325-5 (Version None)
Quarter: 2011Q4

REPORT INFORMATION
  Report Type: 
  Country: None (occurrence: None)
  Receive Date: 20111116
  Receipt Date: 20111115
  Transmission Date: 20120403
  Serious: Yes (Other)
  Sender: FDA-Public Use
  Company Number: FR-ROCHE-1006635

PATIENT
  Sex: Male
  Weight: 176.4 kg

DRUGS (4)
  1. AVASTIN [Concomitant]
     Dosage: 3 INJECTION
     Route: 050
  2. LUCENTIS [Suspect]
     Indication: AGE-RELATED MACULAR DEGENERATION
     Dosage: 9 INJECTIONS RECEIVED
     Route: 050
     Dates: start: 20090101
  3. LUCENTIS [Suspect]
     Dates: start: 20110509
  4. LUCENTIS [Suspect]
     Dates: start: 20110913

REACTIONS (2)
  - PHOTOSENSITIVITY REACTION [None]
  - DERMATITIS BULLOUS [None]
